FAERS Safety Report 9846955 (Version 1)
Quarter: 2013Q4

REPORT INFORMATION
  Report Type: Spontaneous
  Country: US (occurrence: None)
  Receive Date: 20131219
  Receipt Date: 20131219
  Transmission Date: 20140711
  Serious: Yes (Death)
  Sender: FDA-Public Use
  Company Number: 163-20785-13082820

PATIENT
  Age: 44 Year
  Sex: Female

DRUGS (1)
  1. THALOMID (THALIDOMIDE) (50 MILLIGRAM, CAPSULES) [Suspect]
     Indication: PLASMA CELL MYELOMA
     Dosage: 50 MG, 1 IN 1 D, PO  JUN2013-JUL2013
     Route: 048
     Dates: start: 201306, end: 201307

REACTIONS (1)
  - Death [None]
